FAERS Safety Report 21055427 (Version 1)
Quarter: 2022Q3

REPORT INFORMATION
  Report Type: Spontaneous
  Country: US (occurrence: US)
  Receive Date: 20220708
  Receipt Date: 20220708
  Transmission Date: 20221027
  Serious: No
  Sender: FDA-Public Use
  Company Number: US-JNJFOC-20220659543

PATIENT
  Age: 23 Year
  Sex: Female
  Weight: 49.940 kg

DRUGS (2)
  1. STELARA [Suspect]
     Active Substance: USTEKINUMAB
     Indication: Crohn^s disease
     Route: 058
     Dates: start: 20220616
  2. STELARA [Suspect]
     Active Substance: USTEKINUMAB
     Dosage: STELARA INFUSION BACK IN APRIL OR MAY 2022
     Route: 040
     Dates: start: 2022

REACTIONS (2)
  - Paraesthesia [Not Recovered/Not Resolved]
  - Pain [Not Recovered/Not Resolved]

NARRATIVE: CASE EVENT DATE: 20220627
